FAERS Safety Report 5836213-1 (Version None)
Quarter: 2008Q3

REPORT INFORMATION
  Report Type: 
  Country: None (occurrence: None)
  Receive Date: 20080805
  Receipt Date: 20080721
  Transmission Date: 20090109
  Serious: Yes (Death, Hospitalization)
  Sender: FDA-Public Use
  Company Number: 2008S1006716

PATIENT
  Age: 58 Year
  Sex: Female
  Weight: 101 kg

DRUGS (2)
  1. FUROSEMIDE TABLETS, USP (20 MG) [Suspect]
     Indication: FLUID RETENTION
     Dosage: 20 MG;DAILY;ORAL
     Route: 048
     Dates: start: 20080407, end: 20080417
  2. THYROID TAB [Concomitant]

REACTIONS (6)
  - ASTHENIA [None]
  - DISORIENTATION [None]
  - DIZZINESS [None]
  - LOSS OF CONSCIOUSNESS [None]
  - ROAD TRAFFIC ACCIDENT [None]
  - SOMNOLENCE [None]
